FAERS Safety Report 6958736-4 (Version None)
Quarter: 2010Q3

REPORT INFORMATION
  Report Type: 
  Country: None (occurrence: None)
  Receive Date: 20100831
  Receipt Date: 20100818
  Transmission Date: 20110219
  Serious: Yes (Death)
  Sender: FDA-Public Use
  Company Number: PHHY2010CA54127

PATIENT
  Sex: Male

DRUGS (4)
  1. CLOZARIL [Suspect]
     Indication: SCHIZOPHRENIA
     Dosage: 850 MG, QD
     Route: 048
     Dates: start: 20011204
  2. VALPROIC ACID [Concomitant]
     Dosage: 1000 MG, BID
  3. PANTOPRAZOLE [Concomitant]
     Dosage: 40 MG
  4. FENOFIBRATE [Concomitant]
     Dosage: 200 MG

REACTIONS (1)
  - DEATH [None]
